FAERS Safety Report 16016461 (Version 1)
Quarter: 2019Q1

REPORT INFORMATION
  Report Type: Spontaneous
  Country: FR (occurrence: FR)
  Receive Date: 20190228
  Receipt Date: 20190228
  Transmission Date: 20190418
  Serious: Yes (Hospitalization)
  Sender: FDA-Public Use
  Company Number: FR-ACCORD-109817

PATIENT
  Age: 80 Year
  Sex: Male

DRUGS (4)
  1. SERESTA [Suspect]
     Active Substance: OXAZEPAM
     Indication: ANXIETY
     Route: 048
     Dates: end: 20180801
  2. TERCIAN [Suspect]
     Active Substance: CYAMEMAZINE
     Indication: MENTAL DISORDER
     Route: 048
     Dates: end: 20180801
  3. ARIPIPRAZOLE. [Suspect]
     Active Substance: ARIPIPRAZOLE
     Indication: MENTAL DISORDER
     Route: 048
     Dates: end: 20180801
  4. DEPAMIDE [Suspect]
     Active Substance: VALPROMIDE
     Indication: MENTAL DISORDER
     Route: 048
     Dates: end: 20180801

REACTIONS (3)
  - Dysarthria [Recovering/Resolving]
  - Somnolence [Recovering/Resolving]
  - Psychomotor skills impaired [Recovering/Resolving]

NARRATIVE: CASE EVENT DATE: 20180718
